FAERS Safety Report 7178619-7 (Version None)
Quarter: 2010Q4

REPORT INFORMATION
  Report Type: 
  Country: None (occurrence: None)
  Receive Date: 20101221
  Receipt Date: 20101213
  Transmission Date: 20110411
  Serious: No
  Sender: FDA-Public Use
  Company Number: US-BIOGENIDEC-2010BI042568

PATIENT
  Sex: Female

DRUGS (2)
  1. TYSABRI [Suspect]
     Indication: MULTIPLE SCLEROSIS
     Route: 042
     Dates: start: 20080529, end: 20100420
  2. TYSABRI [Suspect]
     Route: 042
     Dates: start: 20101202

REACTIONS (7)
  - COORDINATION ABNORMAL [None]
  - DIZZINESS [None]
  - NAUSEA [None]
  - PRURITUS [None]
  - PRURITUS ALLERGIC [None]
  - SOMNOLENCE [None]
  - VAGINAL DISORDER [None]
